FAERS Safety Report 16819877 (Version 1)
Quarter: 2019Q3

REPORT INFORMATION
  Report Type: Spontaneous
  Country: DE (occurrence: DE)
  Receive Date: 20190917
  Receipt Date: 20190917
  Transmission Date: 20191005
  Serious: Yes (Death)
  Sender: FDA-Public Use
  Company Number: PHHY2019DE215456

PATIENT
  Age: 31 Year
  Sex: Male

DRUGS (1)
  1. TRAMETINIB [Suspect]
     Active Substance: TRAMETINIB
     Indication: NODULAR MELANOMA
     Route: 065

REACTIONS (4)
  - Skin reaction [Unknown]
  - Death [Fatal]
  - Pneumonitis [Unknown]
  - Condition aggravated [Unknown]
